FAERS Safety Report 12186710 (Version 2)
Quarter: 2016Q2

REPORT INFORMATION
  Report Type: Spontaneous
  Country: JP (occurrence: JP)
  Receive Date: 20160317
  Receipt Date: 20160406
  Transmission Date: 20160815
  Serious: Yes (Other)
  Sender: FDA-Public Use
  Company Number: JP-MYLANLABS-2016M1010839

PATIENT

DRUGS (3)
  1. ETOPOSIDE. [Suspect]
     Active Substance: ETOPOSIDE
     Indication: NEPHROBLASTOMA
     Route: 041
  2. CARBOPLATIN MYLAN [Suspect]
     Active Substance: CARBOPLATIN
     Indication: NEPHROBLASTOMA
     Route: 041
  3. IFOMIDE [Suspect]
     Active Substance: IFOSFAMIDE
     Indication: NEPHROBLASTOMA
     Route: 042

REACTIONS (2)
  - Renal impairment [Unknown]
  - Bone marrow failure [Unknown]
